FAERS Safety Report 24991185 (Version 2)
Quarter: 2025Q1

REPORT INFORMATION
  Report Type: Spontaneous
  Country: US (occurrence: US)
  Receive Date: 20250220
  Receipt Date: 20250224
  Transmission Date: 20250409
  Serious: No
  Sender: PFIZER
  Company Number: US-PFIZER INC-PV202400138603

PATIENT
  Age: 77 Year
  Sex: Female

DRUGS (1)
  1. IBRANCE [Suspect]
     Active Substance: PALBOCICLIB
     Dosage: 100 MG, 1X/DAY (TAKE 1 TABLET BY MOUTH DAILY; 3 WEEKS ON AND 7 DAYS OFF)
     Route: 048
     Dates: end: 20250216

REACTIONS (1)
  - Neoplasm recurrence [Unknown]
